FAERS Safety Report 10243292 (Version 3)
Quarter: 2014Q3

REPORT INFORMATION
  Report Type: Report from Study
  Country: AU (occurrence: AU)
  Receive Date: 20140618
  Receipt Date: 20140710
  Transmission Date: 20150326
  Serious: Yes (Other)
  Sender: FDA-Public Use
  Company Number: PHHY2014AU019343

PATIENT
  Age: 89 Year
  Sex: Female

DRUGS (13)
  1. ACLASTA [Suspect]
     Active Substance: ZOLEDRONIC ACID
     Dosage: 5 MG, UNK
     Route: 042
     Dates: start: 20101119
  2. GLUCHON [Concomitant]
     Dosage: UNK UKN, PRN
  3. OSTELIN VITAMIN D [Concomitant]
     Dosage: 1 DF, BID
  4. PANADOL [Concomitant]
     Active Substance: ACETAMINOPHEN
     Dosage: 1 DF, TID
  5. ZYPREXA [Concomitant]
     Active Substance: OLANZAPINE
     Dosage: 1 DF, BEFORE BED
  6. PRISTIQ EXTENDED RELEASE [Concomitant]
     Active Substance: DESVENLAFAXINE SUCCINATE
     Dosage: 1 DF, DAILY
  7. LANTUS [Concomitant]
     Active Substance: INSULIN GLARGINE
     Dosage: 10 U, IN THE MPRNING
  8. CEPHALEXIN. [Concomitant]
     Active Substance: CEPHALEXIN
     Dosage: 10 ML, TID
  9. ACLASTA [Suspect]
     Active Substance: ZOLEDRONIC ACID
     Dosage: 5 MG, UNK
     Route: 042
     Dates: start: 20130220
  10. ACLASTA [Suspect]
     Active Substance: ZOLEDRONIC ACID
     Dosage: 5 MG, UNK
     Route: 042
     Dates: start: 20120116
  11. RESOURCE PLUS [Concomitant]
     Dosage: 60 ML, BID
  12. DUROGESIC [Concomitant]
     Active Substance: FENTANYL
     Dosage: 1 DF, EVERY 72 HOURS (12 PATCH)
  13. MOVICOL [Concomitant]
     Active Substance: POLYETHYLENE GLYCOL 3350\POTASSIUM CHLORIDE\SODIUM BICARBONATE\SODIUM CHLORIDE
     Dosage: 1 DF, DAILY

REACTIONS (12)
  - Dementia [Unknown]
  - Glomerular filtration rate decreased [Not Recovered/Not Resolved]
  - Urinary tract infection [Unknown]
  - Blood glucose increased [Unknown]
  - Renal impairment [Unknown]
  - Blood triglycerides increased [Not Recovered/Not Resolved]
  - Glycosylated haemoglobin increased [Unknown]
  - Influenza [Unknown]
  - Soft tissue injury [Unknown]
  - Blood alkaline phosphatase increased [Not Recovered/Not Resolved]
  - Blood cholesterol increased [Not Recovered/Not Resolved]
  - Blood urea increased [Not Recovered/Not Resolved]

NARRATIVE: CASE EVENT DATE: 20120926
